FAERS Safety Report 24704074 (Version 3)
Quarter: 2024Q4

REPORT INFORMATION
  Report Type: Report from Study
  Country: IL (occurrence: IL)
  Receive Date: 20241206
  Receipt Date: 20241219
  Transmission Date: 20250115
  Serious: Yes (Hospitalization)
  Sender: ABBVIE
  Company Number: IL-ABBVIE-6029807

PATIENT
  Age: 82 Year
  Sex: Male
  Weight: 59.5 kg

DRUGS (9)
  1. FOSCARBIDOPA\FOSLEVODOPA [Suspect]
     Active Substance: FOSCARBIDOPA\FOSLEVODOPA
     Indication: Parkinson^s disease
     Dosage: LOADING DOSE DRUG: 1.2 ML, CONTINUOUS RATE PUMP SETTING BASE: 0.5 ML/H, CONTINUOUS RATE PUMP SETT...
     Route: 058
     Dates: start: 20241124, end: 20241204
  2. STALEVO [Concomitant]
     Active Substance: CARBIDOPA\ENTACAPONE\LEVODOPA
     Indication: Parkinson^s disease
     Route: 048
     Dates: start: 2021
  3. CIPRALEX [Concomitant]
     Active Substance: ESCITALOPRAM OXALATE
     Indication: Depression
     Dosage: TIME INTERVAL: 0.14285714 WEEKS
     Route: 048
     Dates: start: 2021
  4. CLOPIDEXCEL [Concomitant]
     Indication: Prophylaxis
     Dosage: TIME INTERVAL: 0.14285714 WEEKS
     Route: 048
     Dates: start: 1984
  5. LACTULOSE [Concomitant]
     Active Substance: LACTULOSE
     Indication: Constipation
     Dosage: TIME INTERVAL: 0.14285714 WEEKS
     Route: 048
     Dates: start: 1984
  6. VITAMIN D [Concomitant]
     Active Substance: VITAMIN D NOS
     Indication: Osteoporosis
     Dosage: TIME INTERVAL: 0.14285714 WEEKS
     Route: 048
     Dates: start: 2021
  7. MIRO [Concomitant]
     Indication: Sleep disorder
     Dosage: TIME INTERVAL: 0.14285714 WEEKS
     Route: 048
     Dates: start: 2021
  8. CYANOCOBALAMIN\PYRIDOXINE HYDROCHLORIDE\THIAMINE [Concomitant]
     Active Substance: CYANOCOBALAMIN\PYRIDOXINE HYDROCHLORIDE\THIAMINE
     Indication: Vitamin supplementation
     Dosage: TIME INTERVAL: 0.14285714 WEEKS
     Route: 048
     Dates: start: 2021
  9. CARBIDOPA\LEVODOPA [Concomitant]
     Active Substance: CARBIDOPA\LEVODOPA
     Indication: Parkinson^s disease
     Dosage: UNIT: ML/H
     Route: 058
     Dates: start: 2021, end: 20241124

REACTIONS (2)
  - Musculoskeletal stiffness [Recovered/Resolved]
  - Dyskinesia [Recovered/Resolved]

NARRATIVE: CASE EVENT DATE: 20241129
